FAERS Safety Report 15884721 (Version 1)
Quarter: 2019Q1

REPORT INFORMATION
  Report Type: Spontaneous
  Country: US (occurrence: US)
  Receive Date: 20190107
  Receipt Date: 20190107
  Transmission Date: 20190417
  Serious: No
  Sender: FDA-Public Use
  Company Number: None

PATIENT
  Age: 64 Year
  Sex: Male

DRUGS (1)
  1. TRIAMCINOLONE [Suspect]
     Active Substance: TRIAMCINOLONE
     Indication: MULTIPLE ALLERGIES
     Dosage: ?          OTHER DOSE:2 PUFF(S);OTHER FREQUENCY:OTHER;?
     Route: 045

REACTIONS (1)
  - Vision blurred [None]

NARRATIVE: CASE EVENT DATE: 20181114
